FAERS Safety Report 4437147-X (Version None)
Quarter: 2004Q3

REPORT INFORMATION
  Report Type: 
  Country: None (occurrence: None)
  Receive Date: 20040827
  Receipt Date: 20040719
  Transmission Date: 20050211
  Serious: Yes (Other)
  Sender: FDA-Public Use
  Company Number: 2004224519US

PATIENT
  Age: 31 Year
  Sex: Female
  Weight: 113.4 kg

DRUGS (1)
  1. DEPO-PROVERA [Suspect]
     Dosage: 150 MG, SINGLE INJECTION
     Dates: start: 20001128, end: 20001128

REACTIONS (3)
  - AMENORRHOEA [None]
  - THERAPY NON-RESPONDER [None]
  - WEIGHT INCREASED [None]
